FAERS Safety Report 11322619 (Version 1)
Quarter: 2015Q3

REPORT INFORMATION
  Report Type: Report from Study
  Country: US (occurrence: US)
  Receive Date: 20150730
  Receipt Date: 20150730
  Transmission Date: 20151125
  Serious: Yes (Hospitalization, Other)
  Sender: FDA-Public Use
  Company Number: US-ROCHE-776997

PATIENT

DRUGS (4)
  1. RITUXIMAB [Suspect]
     Active Substance: RITUXIMAB
     Indication: HODGKIN^S DISEASE
     Dosage: ON DAYS 1 AND 4
     Route: 042
  2. CYCLOPHOSPHAMIDE. [Suspect]
     Active Substance: CYCLOPHOSPHAMIDE
     Indication: HODGKIN^S DISEASE
     Dosage: ON DAYS 8-11
     Route: 042
  3. FILGRASTIM [Suspect]
     Active Substance: FILGRASTIM
     Indication: HODGKIN^S DISEASE
     Route: 065
  4. MESNA. [Suspect]
     Active Substance: MESNA
     Indication: HODGKIN^S DISEASE
     Route: 065

REACTIONS (7)
  - Chronic kidney disease [Unknown]
  - Cardiomyopathy [Unknown]
  - Neutropenia [Unknown]
  - Neutropenic infection [Unknown]
  - Infection [Unknown]
  - Febrile neutropenia [Unknown]
  - Pancytopenia [Unknown]
